FAERS Safety Report 4647191-5 (Version None)
Quarter: 2005Q2

REPORT INFORMATION
  Report Type: 
  Country: None (occurrence: None)
  Receive Date: 20050428
  Receipt Date: 20050425
  Transmission Date: 20051028
  Serious: Yes (Death, Hospitalization, Other)
  Sender: FDA-Public Use
  Company Number: DE-RB-1562-2005

PATIENT
  Age: 37 Year
  Sex: Female
  Weight: 52 kg

DRUGS (1)
  1. BUPRENORPHINE HCL [Suspect]
     Indication: POLYSUBSTANCE DEPENDENCE
     Route: 060
     Dates: start: 20011001, end: 20050130

REACTIONS (2)
  - SEPSIS [None]
  - THROMBOSIS [None]
